FAERS Safety Report 17263874 (Version 1)
Quarter: 2020Q1

REPORT INFORMATION
  Report Type: Spontaneous
  Country: CH (occurrence: CH)
  Receive Date: 20200113
  Receipt Date: 20200113
  Transmission Date: 20200409
  Serious: Yes (Life-Threatening, Hospitalization)
  Sender: FDA-Public Use
  Company Number: CH-CELGENEUS-CHE-20200102827

PATIENT
  Age: 79 Year
  Sex: Female
  Weight: 42 kg

DRUGS (7)
  1. ADRENALINE [Concomitant]
     Active Substance: EPINEPHRINE
     Indication: PRODUCT USED FOR UNKNOWN INDICATION
     Route: 065
  2. REVLIMID [Suspect]
     Active Substance: LENALIDOMIDE
     Indication: B-CELL LYMPHOMA
     Dosage: 10 MG/DAY FOR 21 DAYS (CYCLE 1 START ON 05DEC2019)
     Route: 048
     Dates: start: 20191205
  3. MABTHERA [Suspect]
     Active Substance: RITUXIMAB
     Indication: B-CELL LYMPHOMA
     Dosage: WITHDRAWAL OF THE INFUSION AFTER APPROXIMATELY 50 MG; IN TOTAL
     Route: 041
     Dates: start: 20191213, end: 20191213
  4. VALTREX [Concomitant]
     Active Substance: VALACYCLOVIR HYDROCHLORIDE
     Indication: PRODUCT USED FOR UNKNOWN INDICATION
     Dosage: 2 TABLETS/DAY
     Route: 048
  5. BACTRIM [Concomitant]
     Active Substance: SULFAMETHOXAZOLE\TRIMETHOPRIM
     Indication: PRODUCT USED FOR UNKNOWN INDICATION
     Dosage: 800/160 MG 1 TABLET 3X/WEEK
     Route: 048
  6. MABTHERA [Suspect]
     Active Substance: RITUXIMAB
     Dosage: IN TOTAL
     Route: 041
     Dates: start: 20191205, end: 20191206
  7. ZYLORIC [Concomitant]
     Active Substance: ALLOPURINOL
     Indication: PRODUCT USED FOR UNKNOWN INDICATION
     Dosage: 1 TABLET/DAY
     Route: 048

REACTIONS (3)
  - Atrial fibrillation [Recovering/Resolving]
  - Cerebral ischaemia [Recovering/Resolving]
  - Anaphylactic reaction [Recovering/Resolving]

NARRATIVE: CASE EVENT DATE: 20191213
